FAERS Safety Report 23201669 (Version 1)
Quarter: 2023Q4

REPORT INFORMATION
  Report Type: Spontaneous
  Country: US (occurrence: None)
  Receive Date: 20231117
  Receipt Date: 20231117
  Transmission Date: 20240110
  Serious: Yes (Other)
  Sender: FDA-Public Use
  Company Number: None

PATIENT
  Age: 68 Year
  Sex: Female
  Weight: 103.5 kg

DRUGS (1)
  1. VENLAFAXINE [Suspect]
     Active Substance: VENLAFAXINE HYDROCHLORIDE
     Dosage: FREQUENCY : DAILY;?
     Route: 048
     Dates: start: 20231015

REACTIONS (8)
  - Hyperhidrosis [None]
  - Feeling hot [None]
  - Headache [None]
  - Palpitations [None]
  - Chest pain [None]
  - Muscle spasms [None]
  - Sleep disorder [None]
  - Drug intolerance [None]
